APPROVED DRUG PRODUCT: PIRFENIDONE
Active Ingredient: PIRFENIDONE
Strength: 534MG
Dosage Form/Route: TABLET;ORAL
Application: A212747 | Product #002 | TE Code: AB
Applicant: AIZANT DRUG RESEARCH SOLUTIONS PRIVATE LTD
Approved: Jul 21, 2022 | RLD: No | RS: No | Type: RX